FAERS Safety Report 7100184-0 (Version None)
Quarter: 2010Q4

REPORT INFORMATION
  Report Type: 
  Country: None (occurrence: None)
  Receive Date: 20101112
  Receipt Date: 20100818
  Transmission Date: 20110411
  Serious: No
  Sender: FDA-Public Use
  Company Number: A0877976A

PATIENT
  Age: 67 Year
  Sex: Male
  Weight: 102.3 kg

DRUGS (2)
  1. CARVEDILOL [Suspect]
     Dosage: 50MG PER DAY
     Dates: start: 20100717, end: 20100718
  2. TRILIPIX [Suspect]
     Indication: BLOOD CHOLESTEROL INCREASED
     Dosage: 135MG PER DAY
     Dates: start: 20100717, end: 20100718

REACTIONS (4)
  - HEADACHE [None]
  - JOINT RANGE OF MOTION DECREASED [None]
  - MUSCULOSKELETAL STIFFNESS [None]
  - NECK PAIN [None]
